FAERS Safety Report 7479142-2 (Version None)
Quarter: 2011Q2

REPORT INFORMATION
  Report Type: 
  Country: None (occurrence: None)
  Receive Date: 20110511
  Receipt Date: 20110511
  Transmission Date: 20111010
  Serious: Yes (Life-Threatening, Hospitalization, Other)
  Sender: FDA-Public Use
  Company Number: None

PATIENT
  Sex: Male
  Weight: 77.1115 kg

DRUGS (1)
  1. ENBREL [Suspect]
     Dates: start: 20050101, end: 20050301

REACTIONS (2)
  - CARDIAC FAILURE [None]
  - VERTIGO [None]
